FAERS Safety Report 5786587-5 (Version None)
Quarter: 2008Q2

REPORT INFORMATION
  Report Type: 
  Country: None (occurrence: None)
  Receive Date: 20080624
  Receipt Date: 20080610
  Transmission Date: 20081010
  Serious: Yes (Hospitalization, Other)
  Sender: FDA-Public Use
  Company Number: AU-GENENTECH-261332

PATIENT
  Sex: Female

DRUGS (1)
  1. MABTHERA [Suspect]
     Indication: IDIOPATHIC THROMBOCYTOPENIC PURPURA
     Dosage: 800 MG, UNK
     Dates: start: 20080216

REACTIONS (3)
  - ANAEMIA [None]
  - CARCINOEMBRYONIC ANTIGEN INCREASED [None]
  - LARGE INTESTINE PERFORATION [None]
